FAERS Safety Report 6084383-5 (Version None)
Quarter: 2009Q1

REPORT INFORMATION
  Report Type: 
  Country: None (occurrence: None)
  Receive Date: 20090219
  Receipt Date: 20090217
  Transmission Date: 20090719
  Serious: Yes (Other)
  Sender: FDA-Public Use
  Company Number: A0768923A

PATIENT
  Sex: Male

DRUGS (7)
  1. ADVAIR DISKUS 100/50 [Suspect]
     Indication: DRUG USE FOR UNKNOWN INDICATION
     Dosage: 1PUFF TWICE PER DAY
     Route: 055
  2. VENTOLIN [Concomitant]
  3. HYDROCODONE BITARTRATE [Concomitant]
  4. ENALAPRIL [Concomitant]
  5. ALLOPURINOL [Concomitant]
  6. NEBULIZER [Concomitant]
  7. STEROID [Concomitant]

REACTIONS (1)
  - BLINDNESS [None]
